FAERS Safety Report 7979074-7 (Version None)
Quarter: 2011Q4

REPORT INFORMATION
  Report Type: 
  Country: None (occurrence: None)
  Receive Date: 20111214
  Receipt Date: 20111130
  Transmission Date: 20120403
  Serious: Yes (Other)
  Sender: FDA-Public Use
  Company Number: JP-PFIZER INC-2011303283

PATIENT
  Sex: Male
  Weight: 2.8 kg

DRUGS (2)
  1. LAMIVUDINE + ZIDOVUDINE [Suspect]
     Dosage: UNK
     Route: 064
  2. VIRACEPT [Suspect]
     Dosage: UNK
     Route: 064

REACTIONS (3)
  - TRANSIENT TACHYPNOEA OF THE NEWBORN [None]
  - MATERNAL EXPOSURE TIMING UNSPECIFIED [None]
  - HYPOGLYCAEMIA NEONATAL [None]
